FAERS Safety Report 21554472 (Version 1)
Quarter: 2022Q4

REPORT INFORMATION
  Report Type: Spontaneous
  Country: US (occurrence: US)
  Receive Date: 20221104
  Receipt Date: 20221104
  Transmission Date: 20230113
  Serious: No
  Sender: FDA-Public Use
  Company Number: US-PFIZER INC-2020287970

PATIENT
  Age: 79 Year
  Sex: Male

DRUGS (4)
  1. EUCRISA [Suspect]
     Active Substance: CRISABOROLE
     Dosage: UNK, DAILY
  2. EUCRISA [Suspect]
     Active Substance: CRISABOROLE
     Dosage: UNK, 2-3X DAILY
     Route: 061
  3. EUCRISA [Suspect]
     Active Substance: CRISABOROLE
     Dosage: APPLY TO AFFECTED AREA DAILY 60GM
  4. EUCRISA [Suspect]
     Active Substance: CRISABOROLE
     Dosage: ) TO BOTH FEET, EYEBROWS, HAIRLINE 1-3X DAILY.

REACTIONS (2)
  - Off label use [Unknown]
  - Skin disorder [Unknown]
